FAERS Safety Report 15202277 (Version 2)
Quarter: 2018Q3

REPORT INFORMATION
  Report Type: Spontaneous
  Country: GB (occurrence: GB)
  Receive Date: 20180726
  Receipt Date: 20180918
  Transmission Date: 20181010
  Serious: Yes (Disabling)
  Sender: FDA-Public Use
  Company Number: GB-TEVA-2018-GB-930129

PATIENT
  Age: 46 Year
  Sex: Male

DRUGS (4)
  1. NAPROXEN. [Concomitant]
     Active Substance: NAPROXEN
     Dosage: TAKE ONE TWICE DAILY WHEN REQUIRED
     Route: 065
     Dates: start: 20180316, end: 20180504
  2. CANDESARTAN. [Concomitant]
     Active Substance: CANDESARTAN
     Indication: HYPERTENSION
     Dosage: 12 MILLIGRAM DAILY;
     Route: 065
     Dates: start: 20180601
  3. CARBAMAZEPINE. [Suspect]
     Active Substance: CARBAMAZEPINE
     Route: 065
     Dates: start: 20180619
  4. MST CONTINUS [Concomitant]
     Active Substance: MORPHINE SULFATE
     Dosage: 80 MILLIGRAM DAILY;
     Route: 065
     Dates: start: 20180316

REACTIONS (3)
  - Dissociation [Recovered/Resolved]
  - Aggression [Recovered/Resolved]
  - Post-traumatic stress disorder [Recovered/Resolved]

NARRATIVE: CASE EVENT DATE: 20180619
